FAERS Safety Report 4742553-X (Version None)
Quarter: 2005Q3

REPORT INFORMATION
  Report Type: 
  Country: None (occurrence: None)
  Receive Date: 20050808
  Receipt Date: 20050720
  Transmission Date: 20060218
  Serious: Yes (Other)
  Sender: FDA-Public Use
  Company Number: USA0507103835

PATIENT
  Sex: Male

DRUGS (2)
  1. CYMBALTA [Suspect]
     Indication: DIABETIC NEUROPATHY
     Dosage: 40 MG
     Dates: end: 20050701
  2. CYMBALTA [Suspect]
     Indication: NEUROPATHIC PAIN
     Dosage: 40 MG
     Dates: end: 20050701

REACTIONS (1)
  - LOSS OF CONSCIOUSNESS [None]
